FAERS Safety Report 17911512 (Version 2)
Quarter: 2024Q2

REPORT INFORMATION
  Report Type: Spontaneous
  Country: MX (occurrence: MX)
  Receive Date: 20200618
  Receipt Date: 20240401
  Transmission Date: 20240716
  Serious: Yes (Other)
  Sender: FDA-Public Use
  Company Number: MX-NVP-000001

PATIENT
  Age: 58 Year
  Sex: Male

DRUGS (2)
  1. SIROLIMUS [Suspect]
     Active Substance: SIROLIMUS
     Indication: Prophylaxis against transplant rejection
     Dosage: 6-8 NG/DL
     Route: 065
  2. TACROLIMUS [Suspect]
     Active Substance: TACROLIMUS
     Indication: Prophylaxis against transplant rejection
     Route: 065

REACTIONS (5)
  - Product use in unapproved indication [Unknown]
  - Hypertriglyceridaemia [Unknown]
  - Transplant rejection [Recovered/Resolved]
  - Hypertension [Unknown]
  - Drug ineffective [Unknown]
